FAERS Safety Report 5753011-8 (Version None)
Quarter: 2008Q2

REPORT INFORMATION
  Report Type: 
  Country: None (occurrence: None)
  Receive Date: 20080527
  Receipt Date: 20080515
  Transmission Date: 20081010
  Serious: Yes (Hospitalization)
  Sender: FDA-Public Use
  Company Number: 08GB001069

PATIENT
  Age: 22 Year
  Sex: Female

DRUGS (2)
  1. PAROXETINE HCL [Suspect]
     Indication: ANXIETY
     Dosage: 20 MG, ORAL; 40 MG, ORAL
     Route: 048
  2. RISPERDAL [Concomitant]

REACTIONS (1)
  - GRAND MAL CONVULSION [None]
